FAERS Safety Report 7916068-1 (Version None)
Quarter: 2011Q4

REPORT INFORMATION
  Report Type: 
  Country: None (occurrence: None)
  Receive Date: 20111115
  Receipt Date: 20091005
  Transmission Date: 20120403
  Serious: Yes (Other)
  Sender: FDA-Public Use
  Company Number: PHHY2009TW60986

PATIENT
  Sex: Female

DRUGS (1)
  1. GLEEVEC [Suspect]
     Indication: GASTROINTESTINAL STROMAL TUMOUR
     Dosage: 400 MG, UNK
     Route: 048
     Dates: start: 20090819, end: 20110410

REACTIONS (18)
  - NEOPLASM MALIGNANT [None]
  - OEDEMA GENITAL [None]
  - ERYTHEMA [None]
  - DYSPNOEA [None]
  - PRURITUS [None]
  - GASTROINTESTINAL STROMAL TUMOUR [None]
  - DIARRHOEA [None]
  - COUGH [None]
  - FATIGUE [None]
  - ASTHMA [None]
  - DYSGEUSIA [None]
  - OEDEMA PERIPHERAL [None]
  - WHITE BLOOD CELL COUNT DECREASED [None]
  - HYPERSENSITIVITY [None]
  - BRONCHITIS [None]
  - DEPRESSION [None]
  - PRODUCTIVE COUGH [None]
  - INCREASED UPPER AIRWAY SECRETION [None]
